FAERS Safety Report 8372541-6 (Version None)
Quarter: 2012Q2

REPORT INFORMATION
  Report Type: 
  Country: None (occurrence: None)
  Receive Date: 20120521
  Receipt Date: 20120515
  Transmission Date: 20120825
  Serious: Yes (Other)
  Sender: FDA-Public Use
  Company Number: PHHY2012MX042483

PATIENT
  Sex: Female

DRUGS (5)
  1. ZOLEDRONOC ACID [Suspect]
     Indication: OSTEOPOROSIS
     Dosage: 5 MG/100 ML, YEARLY
     Route: 042
     Dates: start: 20111019
  2. ZELMAC [Concomitant]
  3. TENORMIN [Concomitant]
  4. DOLAC [Concomitant]
  5. PLENDIL [Concomitant]

REACTIONS (5)
  - DIZZINESS [None]
  - GASTRITIS [None]
  - ABDOMINAL TENDERNESS [None]
  - ABDOMINAL DISTENSION [None]
  - FALL [None]
